FAERS Safety Report 17474389 (Version 1)
Quarter: 2020Q1

REPORT INFORMATION
  Report Type: Report from Study
  Country: US (occurrence: US)
  Receive Date: 20200228
  Receipt Date: 20200228
  Transmission Date: 20200409
  Serious: Yes (Hospitalization, Other)
  Sender: FDA-Public Use
  Company Number: US-MYLANLABS-2020M1020645

PATIENT
  Age: 56 Year
  Sex: Female

DRUGS (1)
  1. AMBRISENTAN TABLETS [Suspect]
     Active Substance: AMBRISENTAN
     Indication: PRODUCT USED FOR UNKNOWN INDICATION
     Dosage: DAILY
     Route: 065

REACTIONS (1)
  - Bacteraemia [Unknown]

NARRATIVE: CASE EVENT DATE: 20200127
